FAERS Safety Report 20636697 (Version 1)
Quarter: 2022Q1

REPORT INFORMATION
  Report Type: Report from Study
  Country: TW (occurrence: TW)
  Receive Date: 20220325
  Receipt Date: 20220325
  Transmission Date: 20220423
  Serious: Yes (Life-Threatening, Hospitalization, Other)
  Sender: FDA-Public Use
  Company Number: TW-PFIZER INC-202200416861

PATIENT
  Age: 34 Year
  Sex: Male

DRUGS (7)
  1. KETAMINE HYDROCHLORIDE [Suspect]
     Active Substance: KETAMINE HYDROCHLORIDE
     Dosage: UNK
  2. MIDOMAFETAMINE [Suspect]
     Active Substance: MIDOMAFETAMINE
     Dosage: UNK, 307.8 PPB
  3. NITROUS OXIDE [Suspect]
     Active Substance: NITROUS OXIDE
     Dosage: UNK
  4. NIMETAZEPAM [Suspect]
     Active Substance: NIMETAZEPAM
     Dosage: UNK
  5. NITRAZEPAM [Suspect]
     Active Substance: NITRAZEPAM
     Dosage: UNK
  6. MEPHEDRONE [Suspect]
     Active Substance: MEPHEDRONE
     Dosage: UNK
  7. 4-METHOXYMETHAMPHETAMINE [Suspect]
     Active Substance: 4-METHOXYMETHAMPHETAMINE

REACTIONS (8)
  - Drug abuse [Unknown]
  - Suicide attempt [Unknown]
  - Suicidal behaviour [Unknown]
  - Anxiety [Unknown]
  - Depressed mood [Unknown]
  - Persecutory delusion [Unknown]
  - Aggression [Unknown]
  - Feelings of worthlessness [Unknown]
